FAERS Safety Report 11576242 (Version 1)
Quarter: 2015Q3

REPORT INFORMATION
  Report Type: Report from Study
  Country: GB (occurrence: GB)
  Receive Date: 20150930
  Receipt Date: 20150930
  Transmission Date: 20151125
  Serious: Yes (Hospitalization, Other)
  Sender: FDA-Public Use
  Company Number: GB-ABBVIE-15K-167-1470039-00

PATIENT
  Age: 50 Year
  Sex: Female

DRUGS (4)
  1. HUMIRA [Suspect]
     Active Substance: ADALIMUMAB
     Indication: RHEUMATOID ARTHRITIS
     Route: 058
     Dates: start: 20141006
  2. HUMIRA [Suspect]
     Active Substance: ADALIMUMAB
     Indication: SYSTEMIC LUPUS ERYTHEMATOSUS
  3. METHOTREXATE [Concomitant]
     Active Substance: METHOTREXATE
     Indication: RHEUMATOID ARTHRITIS
  4. METHOTREXATE [Concomitant]
     Active Substance: METHOTREXATE
     Indication: SYSTEMIC LUPUS ERYTHEMATOSUS

REACTIONS (9)
  - Sepsis [Recovered/Resolved]
  - Joint swelling [Recovering/Resolving]
  - Arthritis bacterial [Recovered/Resolved]
  - Knee arthroplasty [Unknown]
  - Arthralgia [Unknown]
  - Pyrexia [Unknown]
  - Malaise [Unknown]
  - Pyrexia [Unknown]
  - Joint swelling [Unknown]

NARRATIVE: CASE EVENT DATE: 20141223
